FAERS Safety Report 4626076-4 (Version None)
Quarter: 2005Q2

REPORT INFORMATION
  Report Type: 
  Country: None (occurrence: None)
  Receive Date: 20050404
  Receipt Date: 20050218
  Transmission Date: 20051028
  Serious: Yes (Hospitalization, Other)
  Sender: FDA-Public Use
  Company Number: US-MERCK-0502USA02468

PATIENT
  Age: 84 Year
  Sex: Female

DRUGS (9)
  1. VIOXX [Suspect]
     Indication: ARTHRITIS
     Route: 048
     Dates: start: 20040623, end: 20040801
  2. TYLENOL (CAPLET) [Concomitant]
     Route: 065
  3. LIPITOR [Concomitant]
     Route: 065
  4. TRIAMTERENE [Concomitant]
     Route: 065
  5. HYDRODIURIL [Concomitant]
     Route: 065
  6. ATENOLOL [Concomitant]
     Route: 048
  7. CLORAZEPATE MONOPOTASSIUM [Concomitant]
     Indication: SLEEP DISORDER
     Route: 065
  8. ROXICET [Concomitant]
     Indication: BACK PAIN
     Route: 065
  9. FOSAMAX [Concomitant]
     Route: 048

REACTIONS (14)
  - ABDOMINAL PAIN [None]
  - ADVERSE EVENT [None]
  - BLOOD UREA INCREASED [None]
  - BUNDLE BRANCH BLOCK LEFT [None]
  - DILATATION ATRIAL [None]
  - DISEASE RECURRENCE [None]
  - DUODENAL ULCER [None]
  - EMOTIONAL DISTRESS [None]
  - GASTROOESOPHAGEAL REFLUX DISEASE [None]
  - PAIN [None]
  - PEPTIC ULCER [None]
  - UPPER GASTROINTESTINAL HAEMORRHAGE [None]
  - VENTRICULAR HYPERTROPHY [None]
  - WHITE BLOOD CELL COUNT INCREASED [None]
